FAERS Safety Report 4911364-4 (Version None)
Quarter: 2006Q1

REPORT INFORMATION
  Report Type: 
  Country: None (occurrence: None)
  Receive Date: 20060213
  Receipt Date: 20060206
  Transmission Date: 20060701
  Serious: Yes (Hospitalization)
  Sender: FDA-Public Use
  Company Number: 200610143BWH

PATIENT
  Age: 26 Year
  Sex: Female

DRUGS (2)
  1. LEVITRA [Suspect]
     Dosage: 20 MG, TOTAL DAILY, ORAL
     Route: 048
  2. PAXIL [Concomitant]

REACTIONS (3)
  - ARRHYTHMIA [None]
  - DRUG ADMINISTRATION ERROR [None]
  - DRUG INTERACTION [None]
